FAERS Safety Report 4819160-3 (Version None)
Quarter: 2005Q4

REPORT INFORMATION
  Report Type: 
  Country: None (occurrence: None)
  Receive Date: 20051102
  Receipt Date: 20051102
  Transmission Date: 20060501
  Serious: Yes (Death)
  Sender: FDA-Public Use
  Company Number: None

PATIENT
  Age: 81 Year
  Sex: Female

DRUGS (9)
  1. COUMADIN [Suspect]
     Indication: ATRIAL FIBRILLATION
     Dosage: 7.5 MG   DAILY   PO
     Route: 048
  2. COREG [Concomitant]
  3. LISINOPRIL [Concomitant]
  4. DILTIAZEM HCL [Concomitant]
  5. LASIX [Concomitant]
  6. SPIRONOLACTONE [Concomitant]
  7. DIGOXIN [Concomitant]
  8. TRAMADOL [Concomitant]
  9. NASONEX [Concomitant]

REACTIONS (2)
  - LOSS OF CONSCIOUSNESS [None]
  - SUBDURAL HAEMATOMA [None]
